FAERS Safety Report 16958475 (Version 2)
Quarter: 2020Q1

REPORT INFORMATION
  Report Type: Spontaneous
  Country: AU (occurrence: AU)
  Receive Date: 20191024
  Receipt Date: 20200107
  Transmission Date: 20200409
  Serious: Yes (Other)
  Sender: FDA-Public Use
  Company Number: AU-BAYER-2019-186869

PATIENT
  Age: 59 Year
  Sex: Female

DRUGS (4)
  1. ENDONE [Concomitant]
     Active Substance: OXYCODONE HYDROCHLORIDE
     Dosage: 30 MG, PRIOR TO MEALS
  2. ENDONE [Concomitant]
     Active Substance: OXYCODONE HYDROCHLORIDE
     Dosage: 15 MG EVERY THREE HOURS PRN
  3. OXYCONTIN [Concomitant]
     Active Substance: OXYCODONE HYDROCHLORIDE
     Dosage: 30 MG, TDS
  4. NEXAVAR [Suspect]
     Active Substance: SORAFENIB
     Indication: HEPATOCELLULAR CARCINOMA
     Dosage: UNK

REACTIONS (6)
  - Focal nodular hyperplasia [None]
  - Hepatic cirrhosis [None]
  - Alopecia [None]
  - Hepatitis C [None]
  - Cerebrovascular accident [Recovered/Resolved]
  - Hepatic lesion [None]
